FAERS Safety Report 8030970 (Version 2)
Quarter: 2013Q1

REPORT INFORMATION
  Report Type: Spontaneous
  Country: US (occurrence: US)
  Receive Date: 20110712
  Receipt Date: 20130321
  Transmission Date: 20140127
  Serious: Yes (Death, Hospitalization)
  Sender: FDA-Public Use
  Company Number: US-GLAXOSMITHKLINE-A0910013A

PATIENT
  Sex: Male

DRUGS (10)
  1. AVANDIA [Suspect]
     Indication: TYPE 2 DIABETES MELLITUS
     Dosage: 4MG TWICE PER DAY
     Route: 048
  2. METFORMIN [Concomitant]
  3. NEXIUM [Concomitant]
  4. BISOPROLOL [Concomitant]
  5. HYDROCHLOROTHIAZIDE [Concomitant]
  6. MOBIC [Concomitant]
  7. ALTACE [Concomitant]
  8. ADVICOR [Concomitant]
  9. GLIPIZIDE [Concomitant]
  10. DIAZEPAM [Concomitant]

REACTIONS (6)
  - Death [Fatal]
  - Cardiovascular disorder [Unknown]
  - Respiratory failure [Unknown]
  - Respiratory arrest [Unknown]
  - Cerebrovascular accident [Unknown]
  - Coma [Unknown]
